FAERS Safety Report 6423097-6 (Version None)
Quarter: 2009Q4

REPORT INFORMATION
  Report Type: 
  Country: None (occurrence: None)
  Receive Date: 20091102
  Receipt Date: 20091026
  Transmission Date: 20100525
  Serious: Yes (Other)
  Sender: FDA-Public Use
  Company Number: JP-ASTRAZENECA-2009SE23124

PATIENT
  Age: 42 Year
  Sex: Male

DRUGS (2)
  1. CRESTOR [Suspect]
     Indication: HYPERCHOLESTEROLAEMIA
     Route: 048
     Dates: start: 20090928, end: 20091011
  2. CALONAL [Suspect]
     Indication: HEADACHE
     Route: 048
     Dates: start: 20090928, end: 20091011

REACTIONS (1)
  - HEPATIC FUNCTION ABNORMAL [None]
